FAERS Safety Report 8987920 (Version 1)
Quarter: 2012Q4

REPORT INFORMATION
  Report Type: 
  Country: US (occurrence: US)
  Receive Date: 20121227
  Receipt Date: 20121227
  Transmission Date: 20130627
  Serious: Yes (Other)
  Sender: FDA-Public Use
  Company Number: US-WATSON-2012-22610

PATIENT
  Age: 55 Year
  Sex: Male
  Weight: 71 kg

DRUGS (1)
  1. HYDROCODONE BITARTRATE/ACETAMINOPHE   N 10/500 (WATSON LABORATORIES) [Suspect]
     Indication: PAIN
     Dosage: 4 tablets per day
     Route: 048
     Dates: start: 2009, end: 20121215

REACTIONS (2)
  - Myocardial infarction [Unknown]
  - Pain [Not Recovered/Not Resolved]
